FAERS Safety Report 4454951-2 (Version None)
Quarter: 2004Q3

REPORT INFORMATION
  Report Type: 
  Country: None (occurrence: None)
  Receive Date: 20040824
  Receipt Date: 20040513
  Transmission Date: 20050211
  Serious: No
  Sender: FDA-Public Use
  Company Number: SU-2004-002365

PATIENT
  Age: 81 Year
  Sex: Female

DRUGS (9)
  1. BENICAR [Suspect]
     Indication: HYPERTENSION
     Dosage: 20 MG QD PO
     Route: 048
     Dates: start: 20040101
  2. LIPITOR [Concomitant]
  3. LEVOXYL [Concomitant]
  4. ASPIRIN [Concomitant]
  5. GLUCOSAMINE W/CHONDROITIN SULFATES [Concomitant]
  6. CALCIUM [Concomitant]
  7. FLAXSEED OIL [Concomitant]
  8. BLACK COHOSH [Concomitant]
  9. MULTIVITAMIN [Concomitant]

REACTIONS (2)
  - HEPATIC ENZYME INCREASED [None]
  - VERTIGO [None]
